FAERS Safety Report 8387758-4 (Version None)
Quarter: 2012Q2

REPORT INFORMATION
  Report Type: 
  Country: None (occurrence: None)
  Receive Date: 20120525
  Receipt Date: 20120518
  Transmission Date: 20120825
  Serious: Yes (Other)
  Sender: FDA-Public Use
  Company Number: CA-GLAXOSMITHKLINE-A0977223A

PATIENT
  Sex: Female
  Weight: 45.9 kg

DRUGS (6)
  1. PREVACID [Concomitant]
     Indication: GASTROOESOPHAGEAL REFLUX DISEASE
     Dosage: 30MG PER DAY
     Route: 048
     Dates: start: 20080101
  2. ACTONEL [Concomitant]
     Indication: OSTEOPOROSIS
     Dosage: 55MG WEEKLY
     Route: 065
     Dates: start: 20080101
  3. VIOKASE 16 [Concomitant]
     Indication: PANCREATITIS CHRONIC
     Dosage: 2TAB FOUR TIMES PER DAY
     Route: 065
     Dates: start: 20050101
  4. SYMBICORT [Concomitant]
  5. ADVAIR DISKUS 100/50 [Suspect]
     Indication: CHRONIC OBSTRUCTIVE PULMONARY DISEASE
     Dosage: 1PUFF TWICE PER DAY
     Route: 065
     Dates: start: 20120321, end: 20120322
  6. NASONEX [Concomitant]
     Indication: RHINITIS ALLERGIC
     Dosage: 2SPR PER DAY
     Route: 045
     Dates: start: 20060101

REACTIONS (5)
  - ASTHMA [None]
  - CHRONIC OBSTRUCTIVE PULMONARY DISEASE [None]
  - BRONCHOSPASM [None]
  - CHEST DISCOMFORT [None]
  - COUGH [None]
